FAERS Safety Report 4883896-9 (Version None)
Quarter: 2006Q1

REPORT INFORMATION
  Report Type: 
  Country: None (occurrence: None)
  Receive Date: 20060113
  Receipt Date: 20060103
  Transmission Date: 20060701
  Serious: Yes (Other)
  Sender: FDA-Public Use
  Company Number: HQWYE172204JAN06

PATIENT
  Sex: Male

DRUGS (1)
  1. CORDARONE [Suspect]
     Indication: VENTRICULAR EXTRASYSTOLES
     Dosage: ORAL
     Route: 048
     Dates: start: 20000101, end: 20050101

REACTIONS (13)
  - ABNORMAL DREAMS [None]
  - ARTHRALGIA [None]
  - BACK PAIN [None]
  - BONE PAIN [None]
  - DEPOSIT EYE [None]
  - FAECES HARD [None]
  - GAIT DISTURBANCE [None]
  - HEADACHE [None]
  - MUSCLE TWITCHING [None]
  - MUSCULAR WEAKNESS [None]
  - NEUROPATHY [None]
  - SUNBURN [None]
  - THYROID DISORDER [None]
